FAERS Safety Report 14931441 (Version 1)
Quarter: 2018Q2

REPORT INFORMATION
  Report Type: Spontaneous
  Country: FR (occurrence: FR)
  Receive Date: 20180524
  Receipt Date: 20180524
  Transmission Date: 20180711
  Serious: Yes (Other)
  Sender: FDA-Public Use
  Company Number: FR-MERCK KGAA-2048378

PATIENT
  Age: 50 Year
  Sex: Female
  Weight: 88 kg

DRUGS (1)
  1. NOVOTHYROX [Suspect]
     Active Substance: LEVOTHYROXINE SODIUM
     Indication: PRODUCT USED FOR UNKNOWN INDICATION
     Dates: start: 201705

REACTIONS (29)
  - Loss of libido [None]
  - Feeling abnormal [None]
  - Decreased activity [None]
  - Weight loss poor [None]
  - Dry skin [None]
  - Body mass index increased [None]
  - Depressed mood [None]
  - Blood creatinine increased [None]
  - Sleep disorder [None]
  - Obesity [None]
  - Social avoidant behaviour [None]
  - Diarrhoea [None]
  - Heart rate decreased [None]
  - Insomnia [None]
  - Ichthyosis [None]
  - Asthenia [None]
  - Myalgia [None]
  - Dizziness [None]
  - Aggression [None]
  - Weight increased [None]
  - Alopecia [None]
  - Headache [None]
  - Fatigue [None]
  - Decreased interest [None]
  - Blood pressure increased [None]
  - Arthralgia [None]
  - Alanine aminotransferase increased [None]
  - Mood swings [None]
  - Nausea [None]

NARRATIVE: CASE EVENT DATE: 201706
